FAERS Safety Report 13164668 (Version 1)
Quarter: 2017Q1

REPORT INFORMATION
  Report Type: Spontaneous
  Country: IN (occurrence: IN)
  Receive Date: 20170130
  Receipt Date: 20170130
  Transmission Date: 20170428
  Serious: Yes (Death, Other)
  Sender: FDA-Public Use
  Company Number: IN-MYLANLABS-2017M1004661

PATIENT

DRUGS (5)
  1. PALONOSETRON [Suspect]
     Active Substance: PALONOSETRON
     Indication: PRODUCT USED FOR UNKNOWN INDICATION
     Dosage: UNK
  2. CARBOPLATIN. [Suspect]
     Active Substance: CARBOPLATIN
     Indication: PRODUCT USED FOR UNKNOWN INDICATION
     Dosage: UNK
  3. EMEND [Suspect]
     Active Substance: APREPITANT
     Indication: PRODUCT USED FOR UNKNOWN INDICATION
  4. STRICYTE [Suspect]
     Active Substance: GEMCITABINE HYDROCHLORIDE
     Indication: BREAST CANCER
     Dosage: 1200 MG, UNK
     Route: 042
     Dates: start: 20170106, end: 20170106
  5. STRICYTE [Suspect]
     Active Substance: GEMCITABINE HYDROCHLORIDE
     Dosage: 1200 MG, UNK
     Route: 042
     Dates: start: 20170113, end: 20170113

REACTIONS (4)
  - Neutropenia [Not Recovered/Not Resolved]
  - Thrombocytopenia [Not Recovered/Not Resolved]
  - Neutropenic sepsis [Fatal]
  - Neutropenic colitis [Fatal]
